FAERS Safety Report 4526803-0 (Version None)
Quarter: 2004Q4

REPORT INFORMATION
  Report Type: 
  Country: None (occurrence: None)
  Receive Date: 20041213
  Receipt Date: 20041126
  Transmission Date: 20050328
  Serious: Yes (Other)
  Sender: FDA-Public Use
  Company Number: S04-GER-07158-01

PATIENT
  Age: 28 Year
  Sex: Male

DRUGS (4)
  1. CIPRALEX (ESCITALOPRAM) [Suspect]
     Indication: FEAR
     Dosage: 15 MG QD PO
     Route: 048
     Dates: start: 20040101, end: 20041011
  2. CIPRALEX (ESCITALOPRAM) [Suspect]
     Indication: PANIC ATTACK
     Dosage: 15 MG QD PO
     Route: 048
     Dates: start: 20040101, end: 20041011
  3. CIPRALEX (ESCITALOPRAM) [Suspect]
     Indication: FEAR
     Dosage: 10 MG QD PO
     Route: 048
     Dates: start: 20040909, end: 20040101
  4. CIPRALEX (ESCITALOPRAM) [Suspect]
     Indication: PANIC ATTACK
     Dosage: 10 MG QD PO
     Route: 048
     Dates: start: 20040909, end: 20040101

REACTIONS (4)
  - ALANINE AMINOTRANSFERASE INCREASED [None]
  - BLOOD CREATINE PHOSPHOKINASE INCREASED [None]
  - BLOOD LACTATE DEHYDROGENASE INCREASED [None]
  - RHABDOMYOLYSIS [None]
